FAERS Safety Report 13508639 (Version 3)
Quarter: 2017Q3

REPORT INFORMATION
  Report Type: Spontaneous
  Country: LT (occurrence: LT)
  Receive Date: 20170503
  Receipt Date: 20170915
  Transmission Date: 20171127
  Serious: Yes (Other)
  Sender: FDA-Public Use
  Company Number: LT-GLAXOSMITHKLINE-LT2017GSK061441

PATIENT
  Age: 81 Year
  Sex: Male

DRUGS (3)
  1. PERINDOPRIL [Concomitant]
     Active Substance: PERINDOPRIL
     Dosage: 5 MG, BID
  2. METOPROLOLI [Concomitant]
     Dosage: 47.5 MG, 1D
  3. INCRUSE ELLIPTA [Suspect]
     Active Substance: UMECLIDINIUM BROMIDE
     Indication: CHRONIC OBSTRUCTIVE PULMONARY DISEASE
     Dosage: 55 UNK, 1D
     Route: 055
     Dates: start: 20170411, end: 20170414

REACTIONS (6)
  - Asthenia [Recovered/Resolved]
  - Visual impairment [Recovered/Resolved]
  - Blindness transient [Recovered/Resolved]
  - Glaucoma [Unknown]
  - Glaucoma surgery [Unknown]
  - Tachycardia [Recovered/Resolved]

NARRATIVE: CASE EVENT DATE: 20170414
